FAERS Safety Report 18080208 (Version 2)
Quarter: 2020Q3

REPORT INFORMATION
  Report Type: Spontaneous
  Country: US (occurrence: US)
  Receive Date: 20200728
  Receipt Date: 20200817
  Transmission Date: 20201103
  Serious: Yes (Other)
  Sender: FDA-Public Use
  Company Number: US-ADAREPHARM-2020-US-000066

PATIENT
  Age: 47 Year
  Sex: Female
  Weight: 94 kg

DRUGS (2)
  1. PROPRANOLOL [Suspect]
     Active Substance: PROPRANOLOL HYDROCHLORIDE
     Indication: MIGRAINE PROPHYLAXIS
     Dosage: IMMEDIATE RELEASE
     Route: 048
     Dates: start: 201901
  2. SELEGILINE [Interacting]
     Active Substance: SELEGILINE
     Indication: MAJOR DEPRESSION
     Route: 062

REACTIONS (5)
  - Hallucination, visual [Recovered/Resolved]
  - Illusion [Recovered/Resolved]
  - Drug interaction [Recovered/Resolved]
  - Drug ineffective [Unknown]
  - Nightmare [Recovered/Resolved]

NARRATIVE: CASE EVENT DATE: 201902
